FAERS Safety Report 7315349-2 (Version None)
Quarter: 2011Q1

REPORT INFORMATION
  Report Type: 
  Country: None (occurrence: None)
  Receive Date: 20110225
  Receipt Date: 20110222
  Transmission Date: 20110831
  Serious: Yes (Other)
  Sender: FDA-Public Use
  Company Number: US-BAYER-2011-017675

PATIENT
  Sex: Female

DRUGS (2)
  1. YASMIN [Suspect]
     Dosage: UNK
     Route: 048
     Dates: start: 20050401
  2. YAZ [Suspect]
     Dosage: UNK
     Dates: start: 20050401

REACTIONS (2)
  - PAIN [None]
  - CHOLELITHIASIS [None]
